FAERS Safety Report 9086193 (Version 6)
Quarter: 2015Q2

REPORT INFORMATION
  Report Type: Spontaneous
  Country: US (occurrence: US)
  Receive Date: 20130201
  Receipt Date: 20150519
  Transmission Date: 20150821
  Serious: No
  Sender: FDA-Public Use
  Company Number: US-PFIZER INC-2013040903

PATIENT
  Age: 65 Year
  Sex: Male
  Weight: 84 kg

DRUGS (17)
  1. PRILOSEC [Concomitant]
     Active Substance: OMEPRAZOLE MAGNESIUM
     Dosage: 20 MG, 2X/DAY
     Route: 048
  2. HYDROCHLOROTHIAZIDE. [Concomitant]
     Active Substance: HYDROCHLOROTHIAZIDE
     Dosage: 25 MG, DAILY
  3. DOXYCYCLINE HYCLATE. [Concomitant]
     Active Substance: DOXYCYCLINE HYCLATE
     Indication: CELLULITIS
     Dosage: 100 MG, 2X/DAY
     Route: 048
  4. KLONOPIN [Concomitant]
     Active Substance: CLONAZEPAM
     Dosage: 0.5 MG, DAILY AT BEDTIME
  5. LIPITOR [Suspect]
     Active Substance: ATORVASTATIN CALCIUM
     Dosage: 10 MG, DAILY
     Route: 048
  6. CELEBREX [Suspect]
     Active Substance: CELECOXIB
     Indication: OSTEOARTHRITIS
     Dosage: 200 MG, 1X/DAY
     Route: 048
  7. HYDROCODONE W/ACETAMINOPHEN [Concomitant]
     Active Substance: ACETAMINOPHEN\HYDROCODONE BITARTRATE
     Dosage: [HYDROCODONE 5MG]/ [ACETAMINPHEN 325 MG], ONE TO TWO TABLETS EVERY 6 HOURS
  8. CENTRUM SILVER [Concomitant]
     Active Substance: VITAMINS
     Dosage: UNK, 1X/DAY
  9. TOPROL XL [Concomitant]
     Active Substance: METOPROLOL SUCCINATE
     Dosage: 50 MG, ONE TABLET DAILY
     Route: 048
  10. FISH OIL [Concomitant]
     Active Substance: FISH OIL
     Dosage: 1000 MG, 2X/DAY
     Route: 048
  11. SENOKOT-S [Concomitant]
     Active Substance: DOCUSATE SODIUM\SENNOSIDES
     Dosage: 1 DF, 2X/DAY WHEN TAKING PAIN MEDICATION
     Route: 048
  12. ASPIRIN EC [Concomitant]
     Active Substance: ASPIRIN
     Dosage: 81 MG, DAILY, ON HOLD WHILE ON LOVENOX WITH FOOD
     Route: 048
  13. NITROGLYCERIN. [Concomitant]
     Active Substance: NITROGLYCERIN
     Indication: CHEST PAIN
     Dosage: 0.4 MG, AS NEEDED
     Route: 060
  14. VIAGRA [Suspect]
     Active Substance: SILDENAFIL CITRATE
     Indication: ERECTILE DYSFUNCTION
     Dosage: 100 MG, AS NEEDED
     Route: 048
  15. AMLODIPINE BESILATE [Concomitant]
     Active Substance: AMLODIPINE BESYLATE
     Dosage: 10 MG, DAILY
     Route: 048
  16. TRAZODONE HYDROCHLORIDE. [Concomitant]
     Active Substance: TRAZODONE HYDROCHLORIDE
     Indication: INSOMNIA
     Dosage: 50 MG, ONE TABLET AT BEDTIME
  17. HYDROXYZINE HYDROCHLORIDE. [Concomitant]
     Active Substance: HYDROXYZINE HYDROCHLORIDE
     Dosage: 25 MG, 3X/DAY

REACTIONS (5)
  - Rash [Unknown]
  - Dermatitis atopic [Unknown]
  - Myalgia [Unknown]
  - Bone pain [Not Recovered/Not Resolved]
  - Back pain [Unknown]

NARRATIVE: CASE EVENT DATE: 201502
